FAERS Safety Report 24381095 (Version 2)
Quarter: 2024Q4

REPORT INFORMATION
  Report Type: Spontaneous
  Country: US (occurrence: US)
  Receive Date: 20240930
  Receipt Date: 20241213
  Transmission Date: 20250114
  Serious: Yes (Death, Hospitalization)
  Sender: PFIZER
  Company Number: US-PFIZER INC-PV202400127584

PATIENT
  Age: 79 Year
  Sex: Male

DRUGS (1)
  1. VYNDAMAX [Suspect]
     Active Substance: TAFAMIDIS
     Indication: Acquired ATTR amyloidosis
     Dosage: 61 MG

REACTIONS (2)
  - Death [Fatal]
  - Illness [Unknown]

NARRATIVE: CASE EVENT DATE: 20241210
